FAERS Safety Report 4688767-9 (Version None)
Quarter: 2005Q2

REPORT INFORMATION
  Report Type: 
  Country: None (occurrence: None)
  Receive Date: 20050610
  Receipt Date: 20050610
  Transmission Date: 20051028
  Serious: Yes (Life-Threatening, Hospitalization, Other)
  Sender: FDA-Public Use
  Company Number: None

PATIENT
  Sex: Male
  Weight: 73 kg

DRUGS (2)
  1. WARFARIN [Suspect]
     Indication: DEEP VEIN THROMBOSIS
     Dosage: VARYING DOSE PO QHS
     Route: 048
  2. WARFARIN [Suspect]
     Indication: PULMONARY EMBOLISM
     Dosage: VARYING DOSE PO QHS
     Route: 048

REACTIONS (2)
  - HAEMOPTYSIS [None]
  - INTERNATIONAL NORMALISED RATIO INCREASED [None]
